FAERS Safety Report 20378621 (Version 1)
Quarter: 2022Q1

REPORT INFORMATION
  Report Type: Spontaneous
  Country: US (occurrence: None)
  Receive Date: 20220125
  Receipt Date: 20220125
  Transmission Date: 20220423
  Serious: No
  Sender: FDA-Public Use
  Company Number: None

PATIENT
  Age: 72 Year
  Sex: Female

DRUGS (1)
  1. CAPECITABINE [Suspect]
     Active Substance: CAPECITABINE
     Indication: Gallbladder cancer
     Dosage: FREQUENCY: 150MG- TAKE 3 TABLETS BY MOUTH TWICE DAILY, 500MG-TAKE 2 TABLETS BY MOUTH TWICE DAILY; ?
     Route: 048
     Dates: start: 20220111

REACTIONS (3)
  - Chest pain [None]
  - Atrial fibrillation [None]
  - Pericarditis infective [None]

NARRATIVE: CASE EVENT DATE: 20220114
